FAERS Safety Report 9522311 (Version 1)
Quarter: 2013Q3

REPORT INFORMATION
  Report Type: Spontaneous
  Country: US (occurrence: None)
  Receive Date: 20130911
  Receipt Date: 20130911
  Transmission Date: 20140515
  Serious: No
  Sender: FDA-Public Use
  Company Number: US-IGSA-IG1406

PATIENT
  Sex: Female

DRUGS (5)
  1. FLEBOGAMMA DIF [Suspect]
     Indication: PRODUCT USED FOR UNKNOWN INDICATION
     Route: 042
  2. GAMMAGARD [Concomitant]
  3. VIVAGLOBIN [Concomitant]
  4. GAMMAPLEX /00025201/ [Concomitant]
  5. HIZENTRA [Concomitant]

REACTIONS (4)
  - Migraine [None]
  - Renal pain [None]
  - Pyrexia [None]
  - Chills [None]
